FAERS Safety Report 5951464-3 (Version None)
Quarter: 2008Q4

REPORT INFORMATION
  Report Type: 
  Country: None (occurrence: None)
  Receive Date: 20081113
  Receipt Date: 20081106
  Transmission Date: 20090506
  Serious: Yes (Hospitalization)
  Sender: FDA-Public Use
  Company Number: US-BAYER-200814309BCC

PATIENT
  Age: 68 Year
  Sex: Female
  Weight: 85 kg

DRUGS (6)
  1. ASPIRIN [Suspect]
     Indication: DRUG USE FOR UNKNOWN INDICATION
     Dates: start: 20001116
  2. TICLID [Suspect]
     Indication: DRUG USE FOR UNKNOWN INDICATION
     Dates: start: 20080511
  3. LIPITOR [Suspect]
     Indication: CATHETERISATION CARDIAC
     Route: 048
     Dates: start: 20080304, end: 20080413
  4. PLAVIX [Suspect]
     Indication: HYPERTENSION
     Route: 048
     Dates: start: 20080304, end: 20080416
  5. METOPROLOL TARTRATE [Concomitant]
     Dates: start: 20001106
  6. ALTACE [Concomitant]
     Dates: start: 20001106

REACTIONS (5)
  - AGEUSIA [None]
  - DEHYDRATION [None]
  - DIARRHOEA [None]
  - VOMITING [None]
  - WEIGHT DECREASED [None]
